FAERS Safety Report 9427810 (Version 1)
Quarter: 2013Q3

REPORT INFORMATION
  Report Type: Report from Study
  Country: US (occurrence: US)
  Receive Date: 20130730
  Receipt Date: 20130730
  Transmission Date: 20140515
  Serious: No
  Sender: FDA-Public Use
  Company Number: US-ABBOTT-12P-163-0996893-00

PATIENT
  Age: 54 Year
  Sex: Female

DRUGS (3)
  1. NIASPAN (COATED) [Suspect]
     Indication: LOW DENSITY LIPOPROTEIN INCREASED
     Dosage: EVERY NIGHT
     Dates: start: 201110
  2. ASPIRIN [Suspect]
     Indication: PRODUCT USED FOR UNKNOWN INDICATION
  3. CRESTOR [Concomitant]
     Indication: PRODUCT USED FOR UNKNOWN INDICATION

REACTIONS (5)
  - Anaemia [Recovered/Resolved]
  - Intestinal haemorrhage [Recovered/Resolved]
  - Red blood cell count decreased [Unknown]
  - Red blood cell count abnormal [Unknown]
  - Flushing [Not Recovered/Not Resolved]
